FAERS Safety Report 24110074 (Version 1)
Quarter: 2024Q3

REPORT INFORMATION
  Report Type: Spontaneous
  Country: IT (occurrence: IT)
  Receive Date: 20240718
  Receipt Date: 20240718
  Transmission Date: 20241016
  Serious: Yes (Life-Threatening, Other)
  Sender: PFIZER
  Company Number: IT-PFIZER INC-0005498402PHAMED

PATIENT
  Age: 7 Year
  Sex: Male

DRUGS (3)
  1. METHYLPREDNISOLONE SODIUM SUCCINATE [Suspect]
     Active Substance: METHYLPREDNISOLONE SODIUM SUCCINATE
     Indication: Glomerulonephritis
     Dosage: 15 MG/KG, 3 PULSES, EACH ADMINISTERED IN 2 H
     Route: 042
  2. PREDNISONE [Concomitant]
     Active Substance: PREDNISONE
     Indication: Glomerulonephritis
     Dosage: 20 MG, DAILY
     Route: 048
  3. URICASE [Concomitant]
     Dosage: 500 IU
     Route: 042

REACTIONS (2)
  - Seizure [Recovered/Resolved]
  - Blindness transient [Recovered/Resolved]
